FAERS Safety Report 7709424-8 (Version None)
Quarter: 2011Q3

REPORT INFORMATION
  Report Type: 
  Country: None (occurrence: None)
  Receive Date: 20110819
  Receipt Date: 20110802
  Transmission Date: 20111222
  Serious: Yes (Other)
  Sender: FDA-Public Use
  Company Number: 2011SP034530

PATIENT
  Age: 29 Year
  Sex: Female
  Weight: 44 kg

DRUGS (7)
  1. IMPLANON [Suspect]
     Indication: CONTRACEPTION
     Dosage: 1 DF;SC
     Route: 058
     Dates: start: 20110211, end: 20110725
  2. SACCHAROMYCES BOULARDII [Concomitant]
  3. RINOFLUIMUCIL [Concomitant]
  4. AUGMENTIN '125' [Concomitant]
  5. CERAZETTE [Concomitant]
  6. HUMALOG [Concomitant]
  7. ACETAMINOPHEN [Concomitant]

REACTIONS (2)
  - HYPOGLYCAEMIC COMA [None]
  - DIABETES MELLITUS INADEQUATE CONTROL [None]
